FAERS Safety Report 5648668-6 (Version None)
Quarter: 2008Q1

REPORT INFORMATION
  Report Type: 
  Country: None (occurrence: None)
  Receive Date: 20080304
  Receipt Date: 20080225
  Transmission Date: 20080703
  Serious: Yes (Death)
  Sender: FDA-Public Use
  Company Number: A0713317A

PATIENT
  Sex: Female

DRUGS (1)
  1. AVANDIA [Suspect]
     Route: 048
     Dates: start: 20020501, end: 20070223

REACTIONS (4)
  - DEATH [None]
  - EMOTIONAL DISORDER [None]
  - HEART INJURY [None]
  - PAIN [None]
